FAERS Safety Report 20783323 (Version 2)
Quarter: 2022Q2

REPORT INFORMATION
  Report Type: Spontaneous
  Country: HR (occurrence: HR)
  Receive Date: 20220504
  Receipt Date: 20220622
  Transmission Date: 20220721
  Serious: Yes (Other)
  Sender: FDA-Public Use
  Company Number: HR-PFIZER INC-202200624278

PATIENT
  Sex: Male

DRUGS (4)
  1. LORLATINIB [Suspect]
     Active Substance: LORLATINIB
     Indication: Lung adenocarcinoma
     Dosage: 100 MG, DAILY
     Dates: start: 202003
  2. LORLATINIB [Suspect]
     Active Substance: LORLATINIB
     Dosage: 75 MG, 1X/DAY
     Dates: start: 202005
  3. BRIGATINIB [Concomitant]
     Active Substance: BRIGATINIB
     Dosage: 180 MG
     Dates: start: 202110
  4. BRIGATINIB [Concomitant]
     Active Substance: BRIGATINIB
     Dosage: 90 MG, DAILY

REACTIONS (5)
  - Hepatic lesion [Unknown]
  - Hyperlipidaemia [Unknown]
  - Diabetes mellitus [Recovering/Resolving]
  - Renal impairment [Recovering/Resolving]
  - Neoplasm progression [Unknown]

NARRATIVE: CASE EVENT DATE: 20211001
